FAERS Safety Report 18201259 (Version 2)
Quarter: 2020Q4

REPORT INFORMATION
  Report Type: Report from Study
  Country: None (occurrence: US)
  Receive Date: 20200827
  Receipt Date: 20201028
  Transmission Date: 20210113
  Serious: Yes (Other)
  Sender: FDA-Public Use
  Company Number: US-ABBVIE-20K-163-3540658-00

PATIENT
  Sex: Female
  Weight: 56.75 kg

DRUGS (1)
  1. SKYRIZI [Suspect]
     Active Substance: RISANKIZUMAB-RZAA
     Indication: PSORIASIS
     Route: 058

REACTIONS (4)
  - Haemorrhage [Unknown]
  - Procedural complication [Unknown]
  - Post procedural hypotension [Unknown]
  - Post procedural haemorrhage [Unknown]
